FAERS Safety Report 7108132-4 (Version None)
Quarter: 2010Q4

REPORT INFORMATION
  Report Type: 
  Country: None (occurrence: None)
  Receive Date: 20101117
  Receipt Date: 20101116
  Transmission Date: 20110411
  Serious: Yes (Life-Threatening, Hospitalization, Other)
  Sender: FDA-Public Use
  Company Number: GB-PFIZER INC-2006050546

PATIENT
  Age: 59 Year
  Sex: Female
  Weight: 72 kg

DRUGS (10)
  1. SUNITINIB MALATE [Suspect]
     Indication: RENAL CELL CARCINOMA
     Dosage: 50 MG, 1X/DAY CYCLIC
     Route: 048
     Dates: start: 20060324, end: 20060406
  2. SUNITINIB MALATE [Suspect]
     Dosage: CYCLIC
     Dates: start: 20060407, end: 20060411
  3. SUNITINIB MALATE [Suspect]
     Dosage: CYCLIC
     Dates: start: 20060505
  4. ATENOLOL [Concomitant]
     Indication: HYPERTENSION
     Route: 048
     Dates: start: 20050106
  5. CINNARIZINE [Concomitant]
     Indication: MENIERE'S DISEASE
     Route: 048
     Dates: start: 19970401
  6. LEVOTHYROXINE SODIUM [Concomitant]
     Indication: HYPOTHYROIDISM
     Route: 048
     Dates: start: 20030901
  7. BENDROFLUAZIDE [Concomitant]
     Indication: DEPRESSED MOOD
     Route: 048
     Dates: start: 19990101
  8. FLUOXETINE [Concomitant]
     Indication: DEPRESSED MOOD
     Route: 048
     Dates: start: 20040301
  9. CO-CODAMOL [Concomitant]
     Indication: MENIERE'S DISEASE
     Route: 048
     Dates: start: 20000101
  10. SERC [Concomitant]
     Indication: MENIERE'S DISEASE
     Route: 048
     Dates: start: 19970401

REACTIONS (5)
  - BRONCHOSPASM [None]
  - CHEST PAIN [None]
  - DYSPNOEA [None]
  - LOWER RESPIRATORY TRACT INFECTION [None]
  - MUCOSAL INFLAMMATION [None]
